FAERS Safety Report 8809855 (Version 2)
Quarter: 2013Q4

REPORT INFORMATION
  Report Type: Spontaneous
  Country: US (occurrence: US)
  Receive Date: 20120926
  Receipt Date: 20131004
  Transmission Date: 20140711
  Serious: Yes (Hospitalization, Other)
  Sender: FDA-Public Use
  Company Number: US-ROCHE-1078150

PATIENT
  Age: 19 Year
  Sex: Male
  Weight: 61.29 kg

DRUGS (2)
  1. ACCUTANE [Suspect]
     Indication: ACNE
     Route: 065
     Dates: start: 199503, end: 199507
  2. ACCUTANE [Suspect]
     Route: 065
     Dates: start: 199810, end: 199903

REACTIONS (10)
  - Cholangitis sclerosing [Unknown]
  - Colitis ulcerative [Unknown]
  - Inflammatory bowel disease [Unknown]
  - Major depression [Unknown]
  - Emotional distress [Unknown]
  - Cerumen impaction [Unknown]
  - Cheilitis [Unknown]
  - Rash [Unknown]
  - Lip dry [Unknown]
  - Irritable bowel syndrome [Unknown]
